FAERS Safety Report 11887001 (Version 1)
Quarter: 2016Q1

REPORT INFORMATION
  Report Type: Spontaneous
  Country: US (occurrence: US)
  Receive Date: 20160104
  Receipt Date: 20160104
  Transmission Date: 20160526
  Serious: Yes (Hospitalization)
  Sender: FDA-Public Use
  Company Number: US-LUNDBECK-DKLU2008445

PATIENT
  Age: 1 Year
  Sex: Male

DRUGS (2)
  1. SABRIL [Suspect]
     Active Substance: VIGABATRIN
     Indication: INFANTILE SPASMS
     Route: 048
     Dates: start: 20150828, end: 201512
  2. SABRIL [Suspect]
     Active Substance: VIGABATRIN
     Dates: start: 201512

REACTIONS (1)
  - Drug withdrawal convulsions [Unknown]

NARRATIVE: CASE EVENT DATE: 201512
